FAERS Safety Report 6156753-8 (Version None)
Quarter: 2009Q2

REPORT INFORMATION
  Report Type: 
  Country: None (occurrence: None)
  Receive Date: 20090410
  Receipt Date: 20090410
  Transmission Date: 20091009
  Serious: Yes (Other)
  Sender: FDA-Public Use
  Company Number: None

PATIENT
  Sex: Male

DRUGS (3)
  1. DEPAKOTE ER [Suspect]
     Indication: SCHIZOAFFECTIVE DISORDER
     Dates: start: 20081204, end: 20090223
  2. DEPAKOTE ER [Suspect]
     Indication: ANTISOCIAL PERSONALITY DISORDER
     Dosage: 1500MG P.O. @ HS
  3. DEPAKOTE ER [Suspect]
     Indication: BIPOLAR I DISORDER
     Dosage: 1500MG P.O. @ HS

REACTIONS (1)
  - DRUG DISPENSING ERROR [None]
